FAERS Safety Report 21994828 (Version 2)
Quarter: 2023Q1

REPORT INFORMATION
  Report Type: Other
  Country: US (occurrence: None)
  Receive Date: 20230215
  Receipt Date: 20230220
  Transmission Date: 20230417
  Serious: Yes (Other)
  Sender: FDA-Public Use
  Company Number: US-ROCHE-3280374

PATIENT
  Age: 37 Year
  Sex: Female
  Weight: 119.86 kg

DRUGS (14)
  1. OCREVUS [Suspect]
     Active Substance: OCRELIZUMAB
     Indication: Multiple sclerosis
     Dosage: 300MG/ 10ML DATE OF TREATMENT WAS: 28/JUL/2017, 05/JUL/2022, 16/AUG/2017, 28/FEB/2018, 29/AUG/2018,
     Route: 042
  2. BACLOFEN [Concomitant]
     Active Substance: BACLOFEN
  3. BIOTIN [Concomitant]
     Active Substance: BIOTIN
  4. CETIRIZINE [Concomitant]
     Active Substance: CETIRIZINE HYDROCHLORIDE
  5. DROSPIRENONE AND ETHINYL ESTRADIOL [Concomitant]
     Active Substance: DROSPIRENONE\ETHINYL ESTRADIOL
  6. FISH OIL [Concomitant]
     Active Substance: FISH OIL
  7. GABAPENTIN [Concomitant]
     Active Substance: GABAPENTIN
  8. LISINOPRIL [Concomitant]
     Active Substance: LISINOPRIL
  9. MAGNESIUM OXIDE [Concomitant]
     Active Substance: MAGNESIUM OXIDE
  10. NORTRIPTYLINE [Concomitant]
     Active Substance: NORTRIPTYLINE
  11. RIBOFLAVIN [Concomitant]
     Active Substance: RIBOFLAVIN
  12. TIZANIDINE [Concomitant]
     Active Substance: TIZANIDINE
  13. LACTOSE [Concomitant]
     Active Substance: LACTOSE
  14. KETOROLAC TROMETHAMINE [Concomitant]
     Active Substance: KETOROLAC TROMETHAMINE

REACTIONS (18)
  - Pineal neoplasm [Not Recovered/Not Resolved]
  - COVID-19 [Unknown]
  - Anxiety [Unknown]
  - Headache [Recovered/Resolved]
  - Muscle spasms [Recovered/Resolved]
  - Hypertension [Unknown]
  - Fatigue [Unknown]
  - Adjustment disorder with depressed mood [Unknown]
  - Uterine contractions during pregnancy [Recovered/Resolved]
  - Bacterial vaginosis [Recovered/Resolved]
  - Foetal hypokinesia [Recovered/Resolved]
  - Nausea [Recovered/Resolved]
  - Fall [Unknown]
  - Peripheral swelling [Recovered/Resolved]
  - Pain in extremity [Recovered/Resolved]
  - Insomnia [Recovered/Resolved]
  - Hypoaesthesia [Recovered/Resolved]
  - Paraesthesia [Recovered/Resolved]

NARRATIVE: CASE EVENT DATE: 20170621
